FAERS Safety Report 25219541 (Version 2)
Quarter: 2025Q2

REPORT INFORMATION
  Report Type: Spontaneous
  Country: CA (occurrence: CA)
  Receive Date: 20250421
  Receipt Date: 20250423
  Transmission Date: 20250716
  Serious: No
  Sender: PFIZER
  Company Number: CA-PFIZER INC-202500080563

PATIENT
  Age: 56 Year
  Sex: Male

DRUGS (4)
  1. ABRILADA [Suspect]
     Active Substance: ADALIMUMAB-AFZB
     Indication: Hidradenitis
     Route: 058
     Dates: start: 20250403
  2. ABRILADA [Suspect]
     Active Substance: ADALIMUMAB-AFZB
     Route: 058
     Dates: start: 20250420
  3. PREDNISONE [Concomitant]
     Active Substance: PREDNISONE
  4. SOAP [Concomitant]
     Active Substance: SOAP

REACTIONS (1)
  - Tinea versicolour [Unknown]

NARRATIVE: CASE EVENT DATE: 20250101
